FAERS Safety Report 4388266-8 (Version None)
Quarter: 2004Q2

REPORT INFORMATION
  Report Type: 
  Country: None (occurrence: None)
  Receive Date: 20040625
  Receipt Date: 20040109
  Transmission Date: 20050107
  Serious: Yes (Death, Hospitalization)
  Sender: FDA-Public Use
  Company Number: PHHO2004US00786

PATIENT
  Age: 55 Year
  Sex: Male
  Weight: 80 kg

DRUGS (6)
  1. BACLOFEN [Suspect]
     Indication: HICCUPS
     Dates: start: 20031201
  2. GLEEVEC [Suspect]
     Indication: OESOPHAGEAL CARCINOMA
     Dosage: 500 MG, QD ORAL
     Route: 048
     Dates: start: 20031201
  3. REMERON [Suspect]
     Indication: DEPRESSION
     Dates: start: 20031201
  4. LOVENOX [Concomitant]
  5. THORAZINE [Concomitant]
  6. PAXIL [Concomitant]

REACTIONS (18)
  - CONFUSIONAL STATE [None]
  - CREPITATIONS [None]
  - DECREASED APPETITE [None]
  - DEHYDRATION [None]
  - DYSPNOEA [None]
  - HYPERKALAEMIA [None]
  - HYPONATRAEMIA [None]
  - HYPOTENSION [None]
  - HYPOXIA [None]
  - INFECTION [None]
  - MALIGNANT NEOPLASM PROGRESSION [None]
  - MARKEDLY REDUCED DIETARY INTAKE [None]
  - NEUROLOGICAL SYMPTOM [None]
  - RENAL FAILURE ACUTE [None]
  - RESPIRATORY DISTRESS [None]
  - SOMNOLENCE [None]
  - URINARY TRACT INFECTION ENTEROCOCCAL [None]
  - URINE OUTPUT DECREASED [None]
